FAERS Safety Report 9908117 (Version 1)
Quarter: 2014Q1

REPORT INFORMATION
  Report Type: Spontaneous
  Country: US (occurrence: None)
  Receive Date: 20140212
  Receipt Date: 20140212
  Transmission Date: 20141002
  Serious: Yes (Life-Threatening, Hospitalization, Other)
  Sender: FDA-Public Use
  Company Number: None

PATIENT
  Age: 78 Year
  Sex: Female
  Weight: 74.84 kg

DRUGS (10)
  1. PRADAXA [Suspect]
     Indication: ATRIAL FIBRILLATION
     Route: 048
     Dates: start: 20111111, end: 20130502
  2. ALBUTEROL INHALER [Concomitant]
  3. ESTRACE CREAM [Concomitant]
  4. INTEGRA [Concomitant]
  5. CALCIUM [Concomitant]
  6. VITAMIN D [Concomitant]
  7. FISH OIL [Concomitant]
  8. VITAMIN + MINERAL CAP [Concomitant]
  9. FOLIC ACID [Concomitant]
  10. MAGNESIUM [Concomitant]

REACTIONS (3)
  - Arterial occlusive disease [None]
  - Blood glucose increased [None]
  - Respiratory disorder [None]
